FAERS Safety Report 22073877 (Version 2)
Quarter: 2023Q2

REPORT INFORMATION
  Report Type: Spontaneous
  Country: US (occurrence: US)
  Receive Date: 20230308
  Receipt Date: 20230410
  Transmission Date: 20230722
  Serious: Yes (Death, Hospitalization, Other)
  Sender: FDA-Public Use
  Company Number: US-JNJFOC-20230307217

PATIENT
  Age: 82 Year
  Sex: Female

DRUGS (1)
  1. OPSUMIT [Suspect]
     Active Substance: MACITENTAN
     Indication: Product used for unknown indication
     Route: 048

REACTIONS (5)
  - Condition aggravated [Fatal]
  - Thrombocytopenia [Unknown]
  - Oxygen saturation decreased [Unknown]
  - Anaemia [Recovering/Resolving]
  - Hypervolaemia [Unknown]

NARRATIVE: CASE EVENT DATE: 20221102
